FAERS Safety Report 11217103 (Version 2)
Quarter: 2015Q3

REPORT INFORMATION
  Report Type: Spontaneous
  Country: GR (occurrence: GR)
  Receive Date: 20150624
  Receipt Date: 20150923
  Transmission Date: 20151125
  Serious: Yes (Other)
  Sender: FDA-Public Use
  Company Number: GR-GILEAD-2015-0159498

PATIENT
  Age: 38 Year
  Sex: Female
  Weight: 52 kg

DRUGS (5)
  1. ADEK [Concomitant]
     Dosage: 1X1
     Route: 048
     Dates: start: 20150601
  2. CAYSTON [Suspect]
     Active Substance: AZTREONAM
     Indication: PSEUDOMONAS INFECTION
     Dosage: 75 MG, TID
     Route: 055
     Dates: start: 20150301
  3. ADEK [Concomitant]
     Indication: PANCREATIC INSUFFICIENCY
     Dosage: ^1X1^
     Route: 048
  4. AZIVIRUS [Concomitant]
     Indication: PSEUDOMONAS INFECTION
     Dosage: UNK
     Route: 048
  5. CAYSTON [Suspect]
     Active Substance: AZTREONAM
     Dosage: 75 MG, TID
     Route: 055
     Dates: end: 20150531

REACTIONS (1)
  - Haemoptysis [Recovered/Resolved with Sequelae]

NARRATIVE: CASE EVENT DATE: 20150301
